FAERS Safety Report 9508652 (Version 1)
Quarter: 2013Q1

REPORT INFORMATION
  Report Type: Spontaneous
  Country: US (occurrence: None)
  Receive Date: 20130305
  Receipt Date: 20130305
  Transmission Date: 20140127
  Serious: Yes (Other)
  Sender: FDA-Public Use
  Company Number: 163-21880-12081654

PATIENT
  Age: 56 Year
  Sex: Male

DRUGS (10)
  1. REVLIMID (LENALIDOMIDE) (25 MILLIGRAM, CAPSULES) [Suspect]
     Indication: PLASMA CELL MYELOMA
     Dosage: 25 MG, 1 IN 1 D, PO
     Route: 048
     Dates: start: 201208
  2. CYMBALTA (DULOXETINE HYDROCHLORIDE) (UNKNOWN) [Concomitant]
  3. AMBIEN (ZOLPIDEM TARTRATE) (UNKNOWN) [Concomitant]
  4. FERROUS SULFATE (FERROUS SULFATE) (UNKNOWN) [Concomitant]
  5. LIDODERM (LIDOCAINE) (UNKNOWN) [Concomitant]
  6. MORPHINE (MORPHINE) (UNKNOWN) (MORPHINE) [Concomitant]
  7. DURAGESIC (FENTANYL) (UNKNOWN) [Concomitant]
  8. COLACE (DOCUSATE SODIUM) (UNKNOWN) [Concomitant]
  9. NICOTINE (NICOTINE) (POULTICE OR PATCH) [Concomitant]
  10. SENNA PLUS (SENNOSIDE A+B) (UNKNOWN) [Concomitant]

REACTIONS (1)
  - Drug dose omission [None]
